FAERS Safety Report 8422571 (Version 4)
Quarter: 2013Q2

REPORT INFORMATION
  Report Type: Report from Study
  Country: FR (occurrence: FR)
  Receive Date: 20120223
  Receipt Date: 20130506
  Transmission Date: 20140414
  Serious: Yes (Hospitalization)
  Sender: FDA-Public Use
  Company Number: FR-ROCHE-1040178

PATIENT
  Age: 76 Year
  Sex: Female
  Weight: 54 kg

DRUGS (3)
  1. PEG-INTERFERON ALFA 2A [Suspect]
     Indication: CHRONIC MYELOID LEUKAEMIA
     Dosage: DATE OF LAST DOSE PRIOR TO SAE: /JAN/2012
     Route: 065
     Dates: start: 20111222
  2. NILOTINIB [Suspect]
     Indication: CHRONIC MYELOID LEUKAEMIA
     Dosage: DATE OF LAST DOSE PRIOR TO SAE: 30/JAN/2012
     Route: 048
     Dates: start: 20110728
  3. RIBAVIRIN [Suspect]
     Indication: CHRONIC MYELOID LEUKAEMIA
     Route: 065

REACTIONS (1)
  - Lung disorder [Recovered/Resolved]
